FAERS Safety Report 14608334 (Version 1)
Quarter: 2018Q1

REPORT INFORMATION
  Report Type: Spontaneous
  Country: DE (occurrence: DE)
  Receive Date: 20180307
  Receipt Date: 20180307
  Transmission Date: 20180509
  Serious: Yes (Other)
  Sender: FDA-Public Use
  Company Number: DE-TEVA-2018-DE-864117

PATIENT
  Age: 84 Year
  Sex: Male
  Weight: 86 kg

DRUGS (6)
  1. TORASEMID AL [Concomitant]
     Active Substance: TORSEMIDE
  2. VALSARTAN. [Concomitant]
     Active Substance: VALSARTAN
  3. PHENPROGAMMA 3 [Concomitant]
     Dosage: ACCORDING TO QUICK-VALUE
     Dates: start: 20101119
  4. EUTHYROX 75 [Concomitant]
     Active Substance: LEVOTHYROXINE SODIUM
  5. VALSARTAN 80MG [Suspect]
     Active Substance: VALSARTAN
  6. BISOPROLOL [Concomitant]
     Active Substance: BISOPROLOL
     Dosage: 1-0-1/2

REACTIONS (7)
  - Dizziness [Unknown]
  - Intervertebral disc disorder [Unknown]
  - Arrhythmia [Unknown]
  - Headache [Unknown]
  - Neck pain [Unknown]
  - Fall [Unknown]
  - Fatigue [Unknown]
